FAERS Safety Report 14663186 (Version 3)
Quarter: 2019Q2

REPORT INFORMATION
  Report Type: Spontaneous
  Country: US (occurrence: US)
  Receive Date: 20180321
  Receipt Date: 20190423
  Transmission Date: 20190711
  Serious: Yes (Death, Other)
  Sender: FDA-Public Use
  Company Number: US-ASTRAZENECA-2018SE34889

PATIENT
  Age: 16367 Day
  Sex: Male
  Weight: 81.6 kg

DRUGS (19)
  1. GLYBURIDE. [Concomitant]
     Active Substance: GLYBURIDE
     Dosage: 2.5MG UNKNOWN
     Route: 048
  2. NIASPAN [Concomitant]
     Active Substance: NIACIN
     Dosage: 500.0MG UNKNOWN
     Route: 048
  3. LEVAQUIN [Concomitant]
     Active Substance: LEVOFLOXACIN
  4. ASPIRIN. [Concomitant]
     Active Substance: ASPIRIN
     Indication: ANTICOAGULANT THERAPY
     Dates: start: 2013
  5. LOSARTAN. [Concomitant]
     Active Substance: LOSARTAN
     Indication: ANTICOAGULANT THERAPY
     Dates: start: 2016
  6. ALDACTONE [Concomitant]
     Active Substance: SPIRONOLACTONE
     Dosage: 25.0MG UNKNOWN
     Route: 048
  7. LEVOTHYROXINE. [Concomitant]
     Active Substance: LEVOTHYROXINE
     Indication: ANTICOAGULANT THERAPY
     Dates: start: 2013
  8. NIACIN. [Concomitant]
     Active Substance: NIACIN
     Indication: ANTICOAGULANT THERAPY
     Dates: start: 2014
  9. LANTUS [Concomitant]
     Active Substance: INSULIN GLARGINE
     Indication: ANTICOAGULANT THERAPY
     Dosage: 100UNIT/ML
     Route: 058
     Dates: start: 2006
  10. NEXIUM [Suspect]
     Active Substance: ESOMEPRAZOLE MAGNESIUM
     Dosage: 40.0MG UNKNOWN
     Route: 048
     Dates: start: 2008, end: 2015
  11. CLONIDINE. [Concomitant]
     Active Substance: CLONIDINE
     Dosage: 0.1MG UNKNOWN
     Route: 048
  12. SYNTHROID [Concomitant]
     Active Substance: LEVOTHYROXINE SODIUM
  13. ATORVASTATIN [Concomitant]
     Active Substance: ATORVASTATIN
     Indication: ANTICOAGULANT THERAPY
  14. AVALIDE [Concomitant]
     Active Substance: HYDROCHLOROTHIAZIDE\IRBESARTAN
     Dosage: 300-12.5MG
     Route: 048
  15. COREG CR [Concomitant]
     Active Substance: CARVEDILOL PHOSPHATE
     Route: 048
  16. PLAVIX [Concomitant]
     Active Substance: CLOPIDOGREL BISULFATE
     Dosage: 75.0MG UNKNOWN
     Route: 048
  17. VITAMIN D2 [Concomitant]
     Active Substance: ERGOCALCIFEROL
     Dosage: 5000UNIT
     Route: 048
  18. AVAPRO [Concomitant]
     Active Substance: IRBESARTAN
  19. CLOPIDOGREL [Concomitant]
     Active Substance: CLOPIDOGREL BISULFATE
     Indication: ANTICOAGULANT THERAPY
     Dates: start: 2012

REACTIONS (4)
  - Renal failure [Unknown]
  - End stage renal disease [Not Recovered/Not Resolved]
  - Chronic kidney disease [Not Recovered/Not Resolved]
  - Acute kidney injury [Unknown]

NARRATIVE: CASE EVENT DATE: 20130705
